FAERS Safety Report 7895936-3 (Version None)
Quarter: 2011Q4

REPORT INFORMATION
  Report Type: 
  Country: None (occurrence: None)
  Receive Date: 20111106
  Receipt Date: 20110901
  Transmission Date: 20120403
  Serious: No
  Sender: FDA-Public Use
  Company Number: US-AMGEN-USASP2011001362

PATIENT
  Age: 48 Year
  Sex: Female
  Weight: 90.703 kg

DRUGS (3)
  1. ENBREL [Suspect]
     Indication: PSORIASIS
     Dosage: 50 MG, 2 TIMES/WK
     Dates: start: 20101207
  2. PROTONIX [Concomitant]
     Dosage: 40 MG, QD
     Route: 048
  3. LOESTRIN 1.5/30 [Concomitant]
     Route: 048

REACTIONS (9)
  - SCIATICA [None]
  - INJECTION SITE URTICARIA [None]
  - INJECTION SITE DISCHARGE [None]
  - INJECTION SITE REACTION [None]
  - INJECTION SITE PAIN [None]
  - INJECTION SITE HAEMORRHAGE [None]
  - INJECTION SITE ERYTHEMA [None]
  - INJECTION SITE WARMTH [None]
  - BACK PAIN [None]
